FAERS Safety Report 4920965-9 (Version None)
Quarter: 2006Q1

REPORT INFORMATION
  Report Type: 
  Country: None (occurrence: None)
  Receive Date: 20060223
  Receipt Date: 20050706
  Transmission Date: 20060701
  Serious: Yes (Hospitalization, Disabling, Other)
  Sender: FDA-Public Use
  Company Number: US-MERCK-0507USA01064

PATIENT
  Age: 46 Year
  Sex: Male
  Weight: 145 kg

DRUGS (5)
  1. VIOXX [Suspect]
     Indication: ARTHRITIS
     Route: 048
     Dates: start: 19991001, end: 20011001
  2. ZOLOFT [Concomitant]
     Route: 065
     Dates: start: 20000101, end: 20030101
  3. DIOVAN [Concomitant]
     Route: 065
  4. AVANDIA [Concomitant]
     Route: 065
  5. STARLIX [Concomitant]
     Route: 065

REACTIONS (9)
  - ARRHYTHMIA [None]
  - CARDIAC DISORDER [None]
  - CEREBROVASCULAR ACCIDENT [None]
  - CHEST PAIN [None]
  - DIABETES MELLITUS [None]
  - DYSPNOEA [None]
  - GASTROOESOPHAGEAL REFLUX DISEASE [None]
  - LOSS OF CONSCIOUSNESS [None]
  - OVERDOSE [None]
